FAERS Safety Report 9785762 (Version 2)
Quarter: 2014Q2

REPORT INFORMATION
  Report Type: Spontaneous
  Country: DE (occurrence: None)
  Receive Date: 20131224
  Receipt Date: 20140514
  Transmission Date: 20141212
  Serious: Yes (Other)
  Sender: FDA-Public Use
  Company Number: 1312-1612

PATIENT
  Age: 67 Year
  Sex: Male
  Weight: 73.9 kg

DRUGS (2)
  1. VEGF TRAP-EYE [Suspect]
     Indication: AGE-RELATED MACULAR DEGENERATION
     Dates: start: 20130403, end: 20130403
  2. VERTEPORFIN [Suspect]
     Indication: AGE-RELATED MACULAR DEGENERATION
     Dates: start: 20130403, end: 20130403

REACTIONS (4)
  - Blindness [None]
  - Blindness unilateral [None]
  - Macular scar [None]
  - Visual acuity reduced [None]
